FAERS Safety Report 19950976 (Version 1)
Quarter: 2021Q4

REPORT INFORMATION
  Report Type: Spontaneous
  Country: ES (occurrence: ES)
  Receive Date: 20211014
  Receipt Date: 20211014
  Transmission Date: 20220303
  Serious: Yes (Life-Threatening, Hospitalization)
  Sender: FDA-Public Use
  Company Number: None

PATIENT
  Age: 47 Year
  Sex: Female

DRUGS (6)
  1. VENLAFAXINE [Suspect]
     Active Substance: VENLAFAXINE HYDROCHLORIDE
     Indication: Suicide attempt
     Dosage: 30 CAPSULES MODIFIED-RELEASE CAPSULE
     Route: 048
     Dates: start: 20210929, end: 20210929
  2. TIANEPTINE SODIUM [Suspect]
     Active Substance: TIANEPTINE SODIUM
     Indication: Suicide attempt
     Dosage: EFG FILM COATED
     Route: 048
     Dates: start: 20210929, end: 20210929
  3. TIANEPTINE SODIUM [Suspect]
     Active Substance: TIANEPTINE SODIUM
     Indication: Borderline personality disorder
  4. CLONAZEPAM [Suspect]
     Active Substance: CLONAZEPAM
     Indication: Suicide attempt
     Dosage: (635A)
     Route: 048
     Dates: start: 20210929, end: 20210929
  5. VENLAFAXINE [Concomitant]
     Active Substance: VENLAFAXINE HYDROCHLORIDE
     Indication: Borderline personality disorder
     Dosage: 2 MODIFIED RELEASE CAPSULES IN THE MORNING
     Route: 048
     Dates: start: 20150907
  6. TIANEPTINE SODIUM [Concomitant]
     Active Substance: TIANEPTINE SODIUM
     Indication: Borderline personality disorder
     Dosage: EFG FILM COATED TABLET 1 TABLET EVERY 8 HOURS
     Dates: start: 20191206

REACTIONS (2)
  - Depressed level of consciousness [Recovering/Resolving]
  - Respiratory failure [Recovered/Resolved]

NARRATIVE: CASE EVENT DATE: 20210929
